FAERS Safety Report 20110242 (Version 1)
Quarter: 2021Q4

REPORT INFORMATION
  Report Type: Spontaneous
  Country: DE (occurrence: DE)
  Receive Date: 20211124
  Receipt Date: 20211124
  Transmission Date: 20220304
  Serious: Yes (Hospitalization)
  Sender: FDA-Public Use
  Company Number: DE-ADRED-06682-01

PATIENT
  Age: 69 Year
  Sex: Male
  Weight: 72 kg

DRUGS (6)
  1. AMOXICILLIN\CLAVULANIC ACID [Suspect]
     Active Substance: AMOXICILLIN\CLAVULANIC ACID
     Indication: Product used for unknown indication
     Dosage: UNK (875|125 MG, 1-0-1-0, TABLETTEN)
     Route: 048
  2. BUPROPION [Suspect]
     Active Substance: BUPROPION
     Indication: Product used for unknown indication
     Dosage: 150 MILLIGRAM, QD (150 MG, 1-0-0-0, RETARD-TABLETTEN)
     Route: 048
  3. OPICAPONE [Suspect]
     Active Substance: OPICAPONE
     Indication: Product used for unknown indication
     Dosage: 50 MILLIGRAM, QD (50 MG, 0-0-1-0, KAPSELN)
     Route: 048
  4. CARBIDOPA\LEVODOPA [Concomitant]
     Active Substance: CARBIDOPA\LEVODOPA
     Dosage: UNK (GEL UBER PUMPE)
     Route: 033
  5. ZOPICLONE [Concomitant]
     Active Substance: ZOPICLONE
     Dosage: 7.5 MILLIGRAM, QD (7.5 MG, 0-0-0-0.5, TABLETTEN)
     Route: 048
  6. TAMSULOSIN [Concomitant]
     Active Substance: TAMSULOSIN
     Dosage: 0.4 MILLIGRAM, QD (0.4 MG, 0-0-1-0, RETARD-TABLETTEN )
     Route: 048

REACTIONS (8)
  - Disorientation [Unknown]
  - Memory impairment [Unknown]
  - Urinary retention [Unknown]
  - General physical health deterioration [Unknown]
  - Confusional state [Unknown]
  - Balance disorder [Unknown]
  - Language disorder [Unknown]
  - Dysuria [Unknown]
